FAERS Safety Report 18217498 (Version 2)
Quarter: 2020Q3

REPORT INFORMATION
  Report Type: Spontaneous
  Country: CH (occurrence: CH)
  Receive Date: 20200901
  Receipt Date: 20200915
  Transmission Date: 20201103
  Serious: Yes (Other)
  Sender: FDA-Public Use
  Company Number: NVSC2020CH237844

PATIENT
  Sex: Male

DRUGS (1)
  1. COSENTYX [Suspect]
     Active Substance: SECUKINUMAB
     Indication: PSORIASIS
     Dosage: 150 MG, 2X
     Route: 065
     Dates: start: 20200703

REACTIONS (3)
  - Dysphonia [Unknown]
  - Dysarthria [Unknown]
  - Angioedema [Unknown]

NARRATIVE: CASE EVENT DATE: 20200804
